FAERS Safety Report 8774324 (Version 2)
Quarter: 2012Q4

REPORT INFORMATION
  Report Type: 
  Country: US (occurrence: US)
  Receive Date: 20120907
  Receipt Date: 20120927
  Transmission Date: 20130627
  Serious: No
  Sender: FDA-Public Use
  Company Number: US-PFIZER INC-2012219586

PATIENT
  Age: 31 Year
  Sex: Male
  Weight: 81.63 kg

DRUGS (4)
  1. NEURONTIN [Suspect]
     Indication: ANXIETY
     Dosage: 800 mg, 4x/day
     Route: 048
  2. NEURONTIN [Suspect]
     Indication: DEPRESSION
  3. NEURONTIN [Suspect]
     Indication: BACK PAIN
  4. ULTRAM [Concomitant]
     Dosage: UNK

REACTIONS (2)
  - Depression [Unknown]
  - Off label use [Unknown]
